FAERS Safety Report 19240619 (Version 1)
Quarter: 2021Q2

REPORT INFORMATION
  Report Type: Spontaneous
  Country: CN (occurrence: CN)
  Receive Date: 20210511
  Receipt Date: 20210511
  Transmission Date: 20210717
  Serious: Yes (Death, Other)
  Sender: FDA-Public Use
  Company Number: CN-AMGEN-CHNNI2021070154

PATIENT

DRUGS (4)
  1. ACLARUBICIN [Suspect]
     Active Substance: ACLARUBICIN
     Indication: ACUTE MYELOID LEUKAEMIA
     Dosage: 7 MILLIGRAM/SQ. METER, QD ON DAYS 1?7
     Route: 065
  2. GRAN [Suspect]
     Active Substance: FILGRASTIM
     Indication: ACUTE MYELOID LEUKAEMIA
     Dosage: 200 MICROGRAM/SQ. METER, QD ON DAYS 1?14
     Route: 065
  3. G?LASTA [Suspect]
     Active Substance: PEGFILGRASTIM
     Indication: ACUTE MYELOID LEUKAEMIA
     Dosage: 200 MICROGRAM/SQ. METER, QD, ON DAYS 1?14
     Route: 065
  4. CYTARABINE. [Suspect]
     Active Substance: CYTARABINE
     Indication: ACUTE MYELOID LEUKAEMIA
     Dosage: UNK, AT A 12?H DOSE CYCLE FOR DAYS 1?14
     Route: 065

REACTIONS (6)
  - Hepatic function abnormal [Unknown]
  - Oral toxicity [Unknown]
  - Pneumonia [Unknown]
  - Gastrointestinal disorder [Unknown]
  - Death [Fatal]
  - Renal impairment [Unknown]
